FAERS Safety Report 6121143-0 (Version None)
Quarter: 2009Q1

REPORT INFORMATION
  Report Type: 
  Country: None (occurrence: None)
  Receive Date: 20090312
  Receipt Date: 20090302
  Transmission Date: 20090719
  Serious: Yes (Other)
  Sender: FDA-Public Use
  Company Number: ADE2009-0469

PATIENT
  Age: 26 Year
  Sex: Female

DRUGS (2)
  1. CIPROFLOXACIN [Suspect]
     Indication: BRONCHITIS
     Dosage: 1 TAB - BID - UNK
  2. PREDNISONE [Suspect]
     Dosage: 40MG - DAILY -

REACTIONS (5)
  - CUSHING'S SYNDROME [None]
  - DRUG INEFFECTIVE [None]
  - DYSURIA [None]
  - STEVENS-JOHNSON SYNDROME [None]
  - VANISHING BILE DUCT SYNDROME [None]
